FAERS Safety Report 13255915 (Version 1)
Quarter: 2017Q1

REPORT INFORMATION
  Report Type: Spontaneous
  Country: US (occurrence: US)
  Receive Date: 20170219
  Receipt Date: 20170219
  Transmission Date: 20170428
  Serious: Yes (Other)
  Sender: FDA-Public Use
  Company Number: None

PATIENT
  Age: 3 Year
  Sex: Female
  Weight: 15.75 kg

DRUGS (1)
  1. MIRALAX [Suspect]
     Active Substance: POLYETHYLENE GLYCOL 3350
     Indication: CONSTIPATION
     Route: 048
     Dates: start: 20151003, end: 20160801

REACTIONS (6)
  - Paranoia [None]
  - Anger [None]
  - Aggression [None]
  - Separation anxiety disorder [None]
  - Insomnia [None]
  - Screaming [None]

NARRATIVE: CASE EVENT DATE: 20160301
